FAERS Safety Report 8852118 (Version 1)
Quarter: 2012Q4

REPORT INFORMATION
  Report Type: 
  Country: US (occurrence: US)
  Receive Date: 20121022
  Receipt Date: 20121022
  Transmission Date: 20130627
  Serious: No
  Sender: FDA-Public Use
  Company Number: US-BAUSCH-2012BL002474

PATIENT
  Age: 44 None
  Sex: Female

DRUGS (1)
  1. NEOMYCIN AND POLYMYXIN B SULFATES AND HYDROCORTISONE [Suspect]
     Route: 047
     Dates: start: 20120402, end: 20120403

REACTIONS (5)
  - Drug dispensing error [Recovered/Resolved]
  - Incorrect route of drug administration [Recovered/Resolved]
  - Eye oedema [Unknown]
  - Lacrimation increased [Unknown]
  - Ocular hyperaemia [Unknown]
